FAERS Safety Report 5096848-3 (Version None)
Quarter: 2006Q3

REPORT INFORMATION
  Report Type: 
  Country: None (occurrence: None)
  Receive Date: 20060901
  Receipt Date: 20060901
  Transmission Date: 20061208
  Serious: Yes (Hospitalization)
  Sender: FDA-Public Use
  Company Number: None

PATIENT
  Age: 52 Year
  Sex: Female

DRUGS (2)
  1. GABAPENTIN [Suspect]
  2. AMITRIPTYLINE HCL [Suspect]

REACTIONS (2)
  - HALLUCINATION [None]
  - MENTAL STATUS CHANGES [None]
